FAERS Safety Report 5085542-0 (Version None)
Quarter: 2006Q3

REPORT INFORMATION
  Report Type: 
  Country: None (occurrence: None)
  Receive Date: 20060816
  Receipt Date: 20060802
  Transmission Date: 20061208
  Serious: Yes (Hospitalization)
  Sender: FDA-Public Use
  Company Number: SPV1-2006-00406

PATIENT
  Age: 13 Year
  Sex: Male

DRUGS (2)
  1. PENTASA [Suspect]
     Indication: COLITIS ULCERATIVE
     Dosage: 1500 MG DAILY, ORAL
     Route: 048
     Dates: start: 20060620
  2. LACTOMIN (LACTOMIN) [Concomitant]

REACTIONS (1)
  - PLEURISY [None]
